FAERS Safety Report 6732821-4 (Version None)
Quarter: 2010Q2

REPORT INFORMATION
  Report Type: 
  Country: None (occurrence: None)
  Receive Date: 20100519
  Receipt Date: 20100510
  Transmission Date: 20101027
  Serious: Yes (Other)
  Sender: FDA-Public Use
  Company Number: US-AMGEN-QUU411671

PATIENT
  Sex: Female
  Weight: 69.9 kg

DRUGS (4)
  1. NPLATE [Suspect]
     Indication: IDIOPATHIC THROMBOCYTOPENIC PURPURA
     Dates: start: 20050101, end: 20100114
  2. NPLATE [Suspect]
     Dates: start: 20100101
  3. LEVOTHYROXINE SODIUM [Concomitant]
     Dates: start: 20050101
  4. PRENATAL VITAMINS [Concomitant]
     Dates: start: 20100301

REACTIONS (2)
  - PLATELET COUNT DECREASED [None]
  - THERAPEUTIC RESPONSE DECREASED [None]
